FAERS Safety Report 6924563-7 (Version None)
Quarter: 2010Q3

REPORT INFORMATION
  Report Type: 
  Country: None (occurrence: None)
  Receive Date: 20100816
  Receipt Date: 20100806
  Transmission Date: 20110219
  Serious: Yes (Death)
  Sender: FDA-Public Use
  Company Number: IN-ELI_LILLY_AND_COMPANY-IN201008002075

PATIENT
  Sex: Male
  Weight: 43 kg

DRUGS (11)
  1. PEMETREXED [Suspect]
     Indication: NON-SMALL CELL LUNG CANCER
     Dosage: 500 MG/M2, DAY 1 EVERY 21 DAYS
     Route: 042
     Dates: start: 20100311, end: 20100517
  2. CISPLATIN [Suspect]
     Indication: NON-SMALL CELL LUNG CANCER
     Dosage: 75 MG/M2, DAY 1 EVERY 21 DAYS
     Route: 042
     Dates: start: 20100311, end: 20100517
  3. PLACEBO [Suspect]
     Indication: NON-SMALL CELL LUNG CANCER
     Dosage: DAY 1 EVERY 21 DAYS
     Route: 042
     Dates: start: 20100608
  4. FOLIC ACID [Concomitant]
     Indication: PROPHYLAXIS
     Dates: start: 20100304, end: 20100720
  5. VITAMIN B-12 [Concomitant]
     Indication: PROPHYLAXIS
     Dates: start: 20100304, end: 20100517
  6. DEXAMETHASONE [Concomitant]
     Indication: PROPHYLAXIS
     Dates: start: 20100310, end: 20100630
  7. MORPHINE [Concomitant]
     Dates: start: 20100304
  8. DICLOFENAC SODIUM [Concomitant]
     Dates: start: 20100317
  9. RABEPRAZOLE SODIUM [Concomitant]
     Dates: start: 20100317
  10. DOMPERIDONE [Concomitant]
  11. CREMAFFIN [Concomitant]
     Dates: start: 20100226

REACTIONS (1)
  - SUDDEN DEATH [None]
